FAERS Safety Report 6694400-7 (Version None)
Quarter: 2010Q2

REPORT INFORMATION
  Report Type: 
  Country: None (occurrence: None)
  Receive Date: 20100423
  Receipt Date: 20100412
  Transmission Date: 20101027
  Serious: Yes (Hospitalization)
  Sender: FDA-Public Use
  Company Number: US-JNJFOC-20100300337

PATIENT
  Sex: Female
  Weight: 52.16 kg

DRUGS (9)
  1. REMICADE [Suspect]
     Indication: COLITIS ULCERATIVE
     Route: 042
  2. REMICADE [Suspect]
     Dosage: 2 INFUSIONS
     Route: 042
  3. REMICADE [Suspect]
     Route: 042
  4. ISONIAZID [Suspect]
     Indication: ANTIBIOTIC PROPHYLAXIS
  5. COUMADIN [Concomitant]
     Indication: PULMONARY EMBOLISM
  6. PREDNISOLONE [Concomitant]
     Indication: COLITIS ULCERATIVE
  7. FRAGMIN [Concomitant]
     Indication: PULMONARY EMBOLISM
  8. BENADRYL [Concomitant]
     Indication: PREMEDICATION
  9. SOLU-MEDROL [Concomitant]
     Indication: PREMEDICATION

REACTIONS (5)
  - HEPATIC FAILURE [None]
  - HEPATITIS [None]
  - OEDEMA PERIPHERAL [None]
  - PYREXIA [None]
  - RASH [None]
